FAERS Safety Report 6193199-0 (Version None)
Quarter: 2009Q2

REPORT INFORMATION
  Report Type: 
  Country: None (occurrence: None)
  Receive Date: 20090518
  Receipt Date: 20090508
  Transmission Date: 20091009
  Serious: Yes (Hospitalization, Disabling)
  Sender: FDA-Public Use
  Company Number: A0774239A

PATIENT
  Age: 55 Year
  Sex: Male
  Weight: 99.1 kg

DRUGS (3)
  1. AVANDIA [Suspect]
     Dosage: 4MG TWICE PER DAY
     Route: 048
     Dates: start: 20010813, end: 20070601
  2. INSULIN [Concomitant]
  3. METFORMIN HCL [Concomitant]

REACTIONS (1)
  - MYOCARDIAL INFARCTION [None]
